FAERS Safety Report 7119916-0 (Version None)
Quarter: 2010Q4

REPORT INFORMATION
  Report Type: 
  Country: None (occurrence: None)
  Receive Date: 20101123
  Receipt Date: 20101014
  Transmission Date: 20110411
  Serious: No
  Sender: FDA-Public Use
  Company Number: US-BRISTOL-MYERS SQUIBB COMPANY-15334956

PATIENT
  Age: 47 Year
  Sex: Male

DRUGS (2)
  1. ONGLYZA [Suspect]
  2. LISINOPRIL [Suspect]

REACTIONS (1)
  - HYPOTENSION [None]
